FAERS Safety Report 11344910 (Version 2)
Quarter: 2015Q4

REPORT INFORMATION
  Report Type: Report from Study
  Country: FR (occurrence: FR)
  Receive Date: 20150806
  Receipt Date: 20151215
  Transmission Date: 20160304
  Serious: Yes (Hospitalization, Other)
  Sender: FDA-Public Use
  Company Number: FR-BRISTOL-MYERS SQUIBB COMPANY-BMS-2015-050866

PATIENT
  Age: 57 Year
  Sex: Male
  Weight: 78 kg

DRUGS (2)
  1. NIVOLUMAB [Suspect]
     Active Substance: NIVOLUMAB
     Indication: NON-SMALL CELL LUNG CANCER
     Dosage: 234 MG, UNK
     Route: 065
     Dates: start: 20150612
  2. HYDROCORTISONE. [Concomitant]
     Active Substance: HYDROCORTISONE
     Indication: PRODUCT USED FOR UNKNOWN INDICATION
     Dosage: 10 MG, QD
     Route: 065

REACTIONS (2)
  - Blood thyroid stimulating hormone decreased [Unknown]
  - Pulmonary oedema [Recovered/Resolved]

NARRATIVE: CASE EVENT DATE: 201507
